FAERS Safety Report 16152414 (Version 2)
Quarter: 2019Q3

REPORT INFORMATION
  Report Type: Spontaneous
  Country: US (occurrence: US)
  Receive Date: 20190403
  Receipt Date: 20190827
  Transmission Date: 20191004
  Serious: No
  Sender: FDA-Public Use
  Company Number: US-SA-2019SA087619

PATIENT
  Age: 10 Year
  Sex: Female

DRUGS (3)
  1. AZATHIOPRINE. [Concomitant]
     Active Substance: AZATHIOPRINE
  2. DUPIXENT [Suspect]
     Active Substance: DUPILUMAB
     Indication: ECZEMA
     Dosage: UNK, OTHER
     Route: 058
     Dates: start: 20181220
  3. EUCRISA [Concomitant]
     Active Substance: CRISABOROLE

REACTIONS (2)
  - Product administered to patient of inappropriate age [Unknown]
  - Product dose omission [Unknown]

NARRATIVE: CASE EVENT DATE: 20190815
